FAERS Safety Report 25502284 (Version 2)
Quarter: 2025Q3

REPORT INFORMATION
  Report Type: Spontaneous
  Country: US (occurrence: US)
  Receive Date: 20250702
  Receipt Date: 20250711
  Transmission Date: 20251021
  Serious: Yes (Hospitalization)
  Sender: MERCK SHARP & DOHME LLC
  Company Number: US-009507513-2301174

PATIENT
  Age: 67 Year
  Sex: Female
  Weight: 67.1 kg

DRUGS (3)
  1. KEYTRUDA [Suspect]
     Active Substance: PEMBROLIZUMAB
     Indication: Non-small cell lung cancer metastatic
     Route: 042
     Dates: start: 20250625, end: 20250625
  2. TAXOL [Suspect]
     Active Substance: PACLITAXEL
     Indication: Non-small cell lung cancer metastatic
     Dosage: 150 MG/M2, EVERY 3 WEEKS, DAY 1 CYCLE 2
     Dates: start: 20250625
  3. ELIQUIS [Concomitant]
     Active Substance: APIXABAN
     Indication: Deep vein thrombosis

REACTIONS (5)
  - Syncope [Unknown]
  - Hypersensitivity [Unknown]
  - Loss of consciousness [Unknown]
  - Seizure like phenomena [Unknown]
  - Agonal respiration [Unknown]

NARRATIVE: CASE EVENT DATE: 20250625
